FAERS Safety Report 19180843 (Version 5)
Quarter: 2021Q4

REPORT INFORMATION
  Report Type: Spontaneous
  Country: US (occurrence: US)
  Receive Date: 20210426
  Receipt Date: 20211220
  Transmission Date: 20220303
  Serious: Yes (Other)
  Sender: FDA-Public Use
  Company Number: US-PFIZER INC-2021412109

PATIENT
  Age: 66 Year
  Sex: Female

DRUGS (1)
  1. IBRANCE [Suspect]
     Active Substance: PALBOCICLIB
     Indication: Breast cancer female
     Dosage: 125 MG

REACTIONS (7)
  - Dental caries [Unknown]
  - Laboratory test abnormal [Unknown]
  - Malaise [Unknown]
  - Anxiety [Recovered/Resolved]
  - Psychological trauma [Recovered/Resolved]
  - Insomnia [Unknown]
  - Sleep disorder [Unknown]
